FAERS Safety Report 9722103 (Version 1)
Quarter: 2013Q4

REPORT INFORMATION
  Report Type: Spontaneous
  Country: US (occurrence: US)
  Receive Date: 20131202
  Receipt Date: 20131202
  Transmission Date: 20140711
  Serious: No
  Sender: FDA-Public Use
  Company Number: US-BIOGENIDEC-2013BI112935

PATIENT
  Sex: Male

DRUGS (1)
  1. AVONEX [Suspect]
     Indication: RELAPSING-REMITTING MULTIPLE SCLEROSIS
     Route: 030
     Dates: start: 2013

REACTIONS (5)
  - Memory impairment [Unknown]
  - Abnormal behaviour [Unknown]
  - Influenza like illness [Unknown]
  - Myalgia [Unknown]
  - Depression [Unknown]
